FAERS Safety Report 5077914-5 (Version None)
Quarter: 2006Q3

REPORT INFORMATION
  Report Type: 
  Country: None (occurrence: None)
  Receive Date: 20060808
  Receipt Date: 20060802
  Transmission Date: 20061208
  Serious: Yes (Other)
  Sender: FDA-Public Use
  Company Number: 2006P1000389

PATIENT
  Age: 68 Year
  Sex: Male

DRUGS (2)
  1. NICARDIPINE HYDROCHLORIDE [Suspect]
     Indication: BLOOD PRESSURE MANAGEMENT
     Dosage: 50 MG; IV
     Route: 042
     Dates: start: 20060724, end: 20060724
  2. ATROPINE SULFATE [Concomitant]

REACTIONS (3)
  - ABDOMINAL PAIN [None]
  - ILEUS PARALYTIC [None]
  - VOMITING [None]
